FAERS Safety Report 4630335-9 (Version None)
Quarter: 2005Q2

REPORT INFORMATION
  Report Type: 
  Country: None (occurrence: None)
  Receive Date: 20050405
  Receipt Date: 20050405
  Transmission Date: 20051028
  Serious: Yes (Hospitalization)
  Sender: FDA-Public Use
  Company Number: None

PATIENT
  Age: 59 Year
  Sex: Male
  Weight: 63.05 kg

DRUGS (3)
  1. GEMCITABINE [Suspect]
     Indication: PANCREATIC CARCINOMA
     Dosage: 650 MG/M2/WK/IV
     Route: 042
     Dates: start: 20040804, end: 20041110
  2. CELEBREX [Suspect]
     Indication: PANCREATIC CARCINOMA
     Dosage: 400 MG PO BID
     Route: 048
     Dates: start: 20040804, end: 20041122
  3. ARANSP PEN [Concomitant]

REACTIONS (3)
  - ABDOMINAL PAIN [None]
  - COLITIS [None]
  - DISEASE PROGRESSION [None]
